FAERS Safety Report 8312636-6 (Version None)
Quarter: 2012Q2

REPORT INFORMATION
  Report Type: 
  Country: None (occurrence: None)
  Receive Date: 20120424
  Receipt Date: 20120410
  Transmission Date: 20120825
  Serious: Yes (Other)
  Sender: FDA-Public Use
  Company Number: 1202-114

PATIENT
  Sex: Female

DRUGS (2)
  1. EYLEA [Suspect]
     Dosage: INTRAVITREAL
     Dates: start: 20120130
  2. BETADINE [Suspect]

REACTIONS (2)
  - VISUAL ACUITY REDUCED [None]
  - PUNCTATE KERATITIS [None]
